FAERS Safety Report 7812291-5 (Version None)
Quarter: 2011Q4

REPORT INFORMATION
  Report Type: 
  Country: None (occurrence: None)
  Receive Date: 20111013
  Receipt Date: 20111003
  Transmission Date: 20120403
  Serious: Yes (Hospitalization)
  Sender: FDA-Public Use
  Company Number: US-BAYER-2010-005356

PATIENT
  Age: 27 Year
  Sex: Female
  Weight: 83.9 kg

DRUGS (10)
  1. YASMIN [Suspect]
     Dosage: UNK
     Dates: start: 20060501, end: 20080501
  2. MOTRIN [Concomitant]
     Indication: HEADACHE
  3. IBUPROFEN (ADVIL) [Concomitant]
     Indication: HEADACHE
  4. YASMIN [Suspect]
     Indication: MENSTRUAL CYCLE MANAGEMENT
     Dosage: UNK
     Dates: start: 20060501, end: 20080501
  5. IMODIUM [Concomitant]
  6. YASMIN [Suspect]
     Indication: CONTRACEPTION
     Dosage: UNK
     Dates: start: 20060501, end: 20080501
  7. LISINOPRIL [Concomitant]
     Indication: RENAL DISORDER
     Dosage: UNK
     Dates: start: 20060101
  8. WOMEN+#8217;S ONE A DAY [Concomitant]
     Indication: VITAMIN SUPPLEMENTATION
     Dosage: UNK
     Dates: start: 20060101
  9. EXCEDRIN (MIGRAINE) [Concomitant]
     Indication: HEADACHE
     Dosage: UNK UNK, PRN
  10. METFORMIN HYDROCHLORIDE [Concomitant]
     Indication: GLUCOSE TOLERANCE IMPAIRED
     Dosage: UNK
     Dates: start: 20060101

REACTIONS (7)
  - CHOLELITHIASIS [None]
  - PANCREATITIS ACUTE [None]
  - CHOLECYSTITIS CHRONIC [None]
  - DYSPNOEA [None]
  - DIARRHOEA [None]
  - ABDOMINAL PAIN [None]
  - CHEST PAIN [None]
